FAERS Safety Report 9614010 (Version 2)
Quarter: 2013Q4

REPORT INFORMATION
  Report Type: Spontaneous
  Country: US (occurrence: US)
  Receive Date: 20131011
  Receipt Date: 20131011
  Transmission Date: 20140711
  Serious: Yes (Other)
  Sender: FDA-Public Use
  Company Number: US-ASTRAZENECA-2013SE67324

PATIENT
  Sex: Female

DRUGS (8)
  1. NEXIUM [Suspect]
     Indication: GASTROOESOPHAGEAL REFLUX DISEASE
     Route: 048
     Dates: start: 1990, end: 20100507
  2. NEXIUM [Suspect]
     Indication: DYSPEPSIA
     Route: 048
     Dates: start: 1990, end: 20100507
  3. NEXIUM [Suspect]
     Indication: ULCER
     Route: 048
     Dates: start: 1990, end: 20100507
  4. NEXIUM [Suspect]
     Indication: OESOPHAGITIS
     Route: 048
     Dates: start: 1990, end: 20100507
  5. PRILOSEC [Suspect]
     Indication: GASTROOESOPHAGEAL REFLUX DISEASE
     Route: 048
     Dates: start: 1990, end: 20100507
  6. PRILOSEC [Suspect]
     Indication: DYSPEPSIA
     Route: 048
     Dates: start: 1990, end: 20100507
  7. PRILOSEC [Suspect]
     Indication: ULCER
     Route: 048
     Dates: start: 1990, end: 20100507
  8. PRILOSEC [Suspect]
     Indication: OESOPHAGITIS
     Route: 048
     Dates: start: 1990, end: 20100507

REACTIONS (35)
  - Craniocerebral injury [Unknown]
  - Convulsion [Unknown]
  - Cerebrovascular accident [Unknown]
  - Attention deficit/hyperactivity disorder [Unknown]
  - Angina pectoris [Unknown]
  - Anxiety [Unknown]
  - Arrhythmia [Unknown]
  - Chronic fatigue syndrome [Unknown]
  - Immune system disorder [Unknown]
  - Disturbance in attention [Unknown]
  - Cognitive disorder [Unknown]
  - Diabetes mellitus [Unknown]
  - Libido decreased [Unknown]
  - Fibromyalgia [Unknown]
  - Cardiac disorder [Unknown]
  - Hypertension [Unknown]
  - Hyperchlorhydria [Unknown]
  - Malabsorption [Unknown]
  - Mitral valve prolapse [Unknown]
  - Multiple fractures [Unknown]
  - Muscle spasms [Unknown]
  - Panic attack [Unknown]
  - Precancerous cells present [Unknown]
  - Restless legs syndrome [Unknown]
  - Dyspnoea [Unknown]
  - Tremor [Unknown]
  - Muscle twitching [Unknown]
  - Bone disorder [Unknown]
  - Anger [Unknown]
  - Confusional state [Unknown]
  - Depression [Unknown]
  - Headache [Unknown]
  - Insomnia [Unknown]
  - Magnesium deficiency [Unknown]
  - Hypomagnesaemia [Unknown]
